FAERS Safety Report 13738419 (Version 1)
Quarter: 2017Q3

REPORT INFORMATION
  Report Type: Spontaneous
  Country: JP (occurrence: JP)
  Receive Date: 20170710
  Receipt Date: 20170710
  Transmission Date: 20171127
  Serious: Yes (Other)
  Sender: FDA-Public Use
  Company Number: JP-BAYER-2017-113371

PATIENT
  Age: 37 Year
  Sex: Male
  Weight: 62.4 kg

DRUGS (7)
  1. AVELOX [Suspect]
     Active Substance: MOXIFLOXACIN HYDROCHLORIDE
     Indication: PYREXIA
     Dosage: 400 MG, QD
     Route: 048
     Dates: start: 20170605, end: 20170605
  2. RIMEFA 3B TOWA [Concomitant]
     Dosage: UNK
     Route: 042
     Dates: start: 20170605, end: 20170605
  3. MUCOSTA [Concomitant]
     Active Substance: REBAMIPIDE
     Dosage: 100 MG, QD
     Route: 048
     Dates: start: 20170605
  4. BIOTIN [Concomitant]
     Active Substance: BIOTIN
     Dosage: 1 MG, QD
     Route: 042
     Dates: start: 20170605, end: 20170605
  5. FURSULTIAMINE HYDROCHLORIDE [Suspect]
     Active Substance: FURSULTIAMINE HYDROCHLORIDE
     Dosage: UNK
     Route: 042
     Dates: start: 20170605, end: 20170605
  6. VITAMINS NOS [Concomitant]
     Active Substance: VITAMINS
     Dosage: UNK
     Dates: start: 20170605
  7. VC [Concomitant]
     Active Substance: ASCORBIC ACID
     Dosage: 500 MG, QD
     Route: 042
     Dates: start: 20170605, end: 20170605

REACTIONS (2)
  - Dysarthria [Recovered/Resolved]
  - Altered state of consciousness [Recovered/Resolved]

NARRATIVE: CASE EVENT DATE: 20170605
